FAERS Safety Report 17957917 (Version 2)
Quarter: 2020Q3

REPORT INFORMATION
  Report Type: Spontaneous
  Country: US (occurrence: US)
  Receive Date: 20200629
  Receipt Date: 20200902
  Transmission Date: 20201103
  Serious: No
  Sender: FDA-Public Use
  Company Number: US-SA-2020SA166163

PATIENT

DRUGS (6)
  1. MULTIVITAMINS [VITAMINS NOS] [Concomitant]
     Active Substance: VITAMINS
  2. DESONIDE. [Concomitant]
     Active Substance: DESONIDE
  3. ELIDEL [Concomitant]
     Active Substance: PIMECROLIMUS
  4. DUPIXENT [Suspect]
     Active Substance: DUPILUMAB
     Indication: DERMATITIS ATOPIC
     Dosage: 300 MG, QOW
     Route: 058
     Dates: start: 202001
  5. ECONAZOLE NITRATE. [Concomitant]
     Active Substance: ECONAZOLE NITRATE
  6. TRIAMCINOLONE ACETONIDE. [Concomitant]
     Active Substance: TRIAMCINOLONE ACETONIDE

REACTIONS (10)
  - Dermatitis atopic [Unknown]
  - Eczema [Unknown]
  - Sleep disorder [Unknown]
  - Dry skin [Unknown]
  - Pruritus [Unknown]
  - Skin discolouration [Unknown]
  - Madarosis [Unknown]
  - Rash [Unknown]
  - Skin exfoliation [Unknown]
  - Acne [Unknown]

NARRATIVE: CASE EVENT DATE: 2020
